FAERS Safety Report 22116724 (Version 1)
Quarter: 2023Q1

REPORT INFORMATION
  Report Type: Spontaneous
  Country: None (occurrence: US)
  Receive Date: 20230320
  Receipt Date: 20230320
  Transmission Date: 20230418
  Serious: No
  Sender: FDA-Public Use
  Company Number: US-Ascend Therapeutics US, LLC-2139295

PATIENT
  Age: 90 Year

DRUGS (2)
  1. ANDROGEL 1% [Suspect]
     Active Substance: TESTOSTERONE
     Indication: Product used for unknown indication
     Route: 065
  2. ANDROGEL 1% [Suspect]
     Active Substance: TESTOSTERONE
     Route: 065

REACTIONS (2)
  - Rash [Unknown]
  - Pruritus [Unknown]
